FAERS Safety Report 14165253 (Version 4)
Quarter: 2018Q1

REPORT INFORMATION
  Report Type: Report from Study
  Country: US (occurrence: US)
  Receive Date: 20171107
  Receipt Date: 20180202
  Transmission Date: 20180508
  Serious: Yes (Death, Hospitalization)
  Sender: FDA-Public Use
  Company Number: US-B.I. PHARMACEUTICALS,INC./RIDGEFIELD-2017-BI-059077

PATIENT
  Age: 74 Year
  Sex: Female

DRUGS (3)
  1. OFEV [Suspect]
     Active Substance: NINTEDANIB
     Indication: HYPOXIA
     Route: 048
     Dates: start: 20170418, end: 20180128
  2. OFEV [Suspect]
     Active Substance: NINTEDANIB
     Indication: CHRONIC RESPIRATORY FAILURE
     Route: 048
     Dates: start: 20170413
  3. OFEV [Suspect]
     Active Substance: NINTEDANIB
     Indication: IDIOPATHIC PULMONARY FIBROSIS

REACTIONS (3)
  - Intervertebral disc protrusion [Not Recovered/Not Resolved]
  - Spinal cord abscess [Not Recovered/Not Resolved]
  - Death [Fatal]

NARRATIVE: CASE EVENT DATE: 20180128
